FAERS Safety Report 5749918-8 (Version None)
Quarter: 2008Q2

REPORT INFORMATION
  Report Type: 
  Country: None (occurrence: None)
  Receive Date: 20080520
  Receipt Date: 20080520
  Transmission Date: 20081010
  Serious: Yes (Life-Threatening, Hospitalization, Disabling)
  Sender: FDA-Public Use
  Company Number: None

PATIENT
  Sex: Female
  Weight: 76.2043 kg

DRUGS (1)
  1. TORADOL [Suspect]
     Indication: ANALGESIA
     Dosage: 60MG ONE  IM
     Route: 030
     Dates: start: 20080514, end: 20080514

REACTIONS (2)
  - BACK PAIN [None]
  - RENAL FAILURE ACUTE [None]
